FAERS Safety Report 8358430-1 (Version None)
Quarter: 2012Q2

REPORT INFORMATION
  Report Type: 
  Country: None (occurrence: None)
  Receive Date: 20120514
  Receipt Date: 20110808
  Transmission Date: 20120825
  Serious: No
  Sender: FDA-Public Use
  Company Number: US-TEVA-2011004167

PATIENT
  Sex: Female
  Weight: 65.83 kg

DRUGS (5)
  1. HYDROCODONE BITARTRATE AND ACETAMINOPHEN [Concomitant]
  2. SIMVASTATIN [Concomitant]
  3. NUVIGIL [Suspect]
     Indication: NARCOLEPSY
     Dosage: 150 MILLIGRAM;
     Route: 048
     Dates: start: 20110729
  4. LISINOPRIL [Concomitant]
  5. CYMBALTA [Concomitant]

REACTIONS (1)
  - DRUG TOLERANCE [None]
